FAERS Safety Report 10996503 (Version 1)
Quarter: 2015Q2

REPORT INFORMATION
  Report Type: Spontaneous
  Country: US (occurrence: None)
  Receive Date: 20150407
  Receipt Date: 20150407
  Transmission Date: 20150821
  Serious: Yes (Other)
  Sender: FDA-Public Use
  Company Number: None

PATIENT
  Age: 63 Year
  Sex: Male
  Weight: 205 kg

DRUGS (5)
  1. CLOPIDOGREL 75 MG, TEIVA [Suspect]
     Active Substance: CLOPIDOGREL BISULFATE
     Indication: ANTICOAGULANT THERAPY
     Route: 048
     Dates: start: 20150204, end: 20150222
  2. FINASTERIDE. [Concomitant]
     Active Substance: FINASTERIDE
  3. EFFIENT [Concomitant]
     Active Substance: PRASUGREL HYDROCHLORIDE
  4. LOVASTATIN. [Concomitant]
     Active Substance: LOVASTATIN
  5. BYSTOLIC [Concomitant]
     Active Substance: NEBIVOLOL HYDROCHLORIDE

REACTIONS (3)
  - Chills [None]
  - Hepatic enzyme increased [None]
  - Pyrexia [None]

NARRATIVE: CASE EVENT DATE: 20150214
